FAERS Safety Report 4898765-8 (Version None)
Quarter: 2006Q1

REPORT INFORMATION
  Report Type: 
  Country: None (occurrence: None)
  Receive Date: 20060131
  Receipt Date: 20060116
  Transmission Date: 20060701
  Serious: Yes (Other)
  Sender: FDA-Public Use
  Company Number: 2006PV006801

PATIENT
  Age: 67 Year
  Sex: Female
  Weight: 70.3075 kg

DRUGS (12)
  1. BYETTA [Suspect]
     Indication: DIABETES MELLITUS NON-INSULIN-DEPENDENT
     Dosage: SEE IMAGE
     Route: 058
     Dates: start: 20051101, end: 20051201
  2. BYETTA [Suspect]
     Indication: DIABETES MELLITUS NON-INSULIN-DEPENDENT
     Dosage: SEE IMAGE
     Route: 058
     Dates: start: 20051201
  3. LANTUS [Concomitant]
  4. GLUCOPHAGE [Concomitant]
  5. ACTOS [Concomitant]
  6. NEXIUM [Concomitant]
  7. STARLIX [Concomitant]
  8. PRINIVIL [Concomitant]
  9. SYNTHROID [Concomitant]
  10. CLONAZEPAM [Concomitant]
  11. LIPITOR [Concomitant]
  12. GLIPIZIDE [Concomitant]

REACTIONS (6)
  - ALANINE AMINOTRANSFERASE INCREASED [None]
  - ASPARTATE AMINOTRANSFERASE INCREASED [None]
  - BLOOD GLUCOSE DECREASED [None]
  - HEPATIC ENZYME ABNORMAL [None]
  - IRON DEFICIENCY ANAEMIA [None]
  - PANCREATITIS [None]
